FAERS Safety Report 11807272 (Version 2)
Quarter: 2016Q1

REPORT INFORMATION
  Report Type: Spontaneous
  Country: US (occurrence: US)
  Receive Date: 20151207
  Receipt Date: 20160104
  Transmission Date: 20160525
  Serious: Yes (Other)
  Sender: FDA-Public Use
  Company Number: US-PFIZER INC-2015414137

PATIENT
  Age: 44 Year
  Sex: Female

DRUGS (1)
  1. NEURONTIN [Suspect]
     Active Substance: GABAPENTIN
     Dosage: UNK

REACTIONS (11)
  - Heart rate decreased [Recovered/Resolved]
  - Fatigue [Recovered/Resolved]
  - Drug intolerance [Recovered/Resolved]
  - Condition aggravated [Recovered/Resolved]
  - Panic reaction [Recovered/Resolved]
  - Headache [Recovered/Resolved]
  - Drug ineffective [Recovered/Resolved]
  - Muscle spasms [Recovered/Resolved]
  - Heart rate irregular [Recovered/Resolved]
  - Road traffic accident [Recovered/Resolved]
  - Migraine [Recovered/Resolved]
